FAERS Safety Report 10447249 (Version 1)
Quarter: 2014Q3

REPORT INFORMATION
  Report Type: Spontaneous
  Country: AU (occurrence: AU)
  Receive Date: 20140911
  Receipt Date: 20140911
  Transmission Date: 20150326
  Serious: Yes (Life-Threatening, Hospitalization)
  Sender: FDA-Public Use
  Company Number: AU-BAYER-2014-135167

PATIENT
  Age: 57 Year
  Sex: Female
  Weight: 72 kg

DRUGS (3)
  1. 5-FU [Concomitant]
     Active Substance: FLUOROURACIL
     Dosage: X 32 DOSES
  2. STIVARGA [Suspect]
     Active Substance: REGORAFENIB
     Indication: COLORECTAL CANCER METASTATIC
     Dosage: 4 TABLETS DAILY
     Route: 048
     Dates: start: 20140806, end: 20140817
  3. AVASTIN [Concomitant]
     Active Substance: BEVACIZUMAB
     Dosage: X 32 DOSES

REACTIONS (3)
  - Mucosal inflammation [Recovered/Resolved with Sequelae]
  - Skin exfoliation [Recovered/Resolved with Sequelae]
  - Cardiac failure [Recovered/Resolved with Sequelae]

NARRATIVE: CASE EVENT DATE: 20140809
